FAERS Safety Report 10203745 (Version 1)
Quarter: 2014Q2

REPORT INFORMATION
  Report Type: Spontaneous
  Country: US (occurrence: None)
  Receive Date: 20140523
  Receipt Date: 20140523
  Transmission Date: 20141212
  Serious: Yes (Hospitalization)
  Sender: FDA-Public Use
  Company Number: US-001034

PATIENT
  Age: 61 Year
  Sex: Female

DRUGS (2)
  1. GATTEX [Suspect]
     Indication: SHORT-BOWEL SYNDROME
     Route: 058
     Dates: start: 20131029
  2. SOLUTIONS FOR PARENTERAL NUTRITION [Concomitant]

REACTIONS (1)
  - Hysterectomy [None]
